FAERS Safety Report 7339763-4 (Version None)
Quarter: 2011Q1

REPORT INFORMATION
  Report Type: 
  Country: None (occurrence: None)
  Receive Date: 20110309
  Receipt Date: 20110222
  Transmission Date: 20110831
  Serious: Yes (Hospitalization, Other)
  Sender: FDA-Public Use
  Company Number: US-BAYER-2010-002731

PATIENT
  Sex: Female

DRUGS (7)
  1. OXYCODONE HCL AND ACETAMINOPHEN [Concomitant]
     Dosage: UNK
     Dates: start: 20081002
  2. CLARINEX [Concomitant]
     Dosage: UNK
     Dates: start: 20080626
  3. OCELLA [Suspect]
     Dosage: UNK
     Dates: start: 20081104, end: 20090401
  4. OMEPRAZOLE [Concomitant]
     Dosage: UNK
     Dates: start: 20080818
  5. YAZ [Suspect]
     Indication: CONTRACEPTION
     Dosage: UNK
     Dates: start: 20080626, end: 20081101
  6. LISINOPRIL [Concomitant]
     Dosage: UNK
     Dates: start: 20080721
  7. PRILOSEC [Concomitant]
     Dosage: UNK
     Dates: start: 20080805

REACTIONS (5)
  - CHOLELITHIASIS [None]
  - CHOLECYSTITIS CHRONIC [None]
  - ABDOMINAL PAIN [None]
  - EMOTIONAL DISTRESS [None]
  - CHOLECYSTITIS ACUTE [None]
